FAERS Safety Report 7069965-6 (Version None)
Quarter: 2010Q4

REPORT INFORMATION
  Report Type: 
  Country: None (occurrence: None)
  Receive Date: 20101028
  Receipt Date: 20100820
  Transmission Date: 20110411
  Serious: No
  Sender: FDA-Public Use
  Company Number: US-WYE-H16337010

PATIENT
  Age: 18 Year
  Sex: Male
  Weight: 98.52 kg

DRUGS (1)
  1. ADVIL [Suspect]
     Indication: HEADACHE
     Route: 048
     Dates: start: 20100711, end: 20100712

REACTIONS (1)
  - DRUG INEFFECTIVE [None]
